FAERS Safety Report 6864889-9 (Version None)
Quarter: 2010Q3

REPORT INFORMATION
  Report Type: 
  Country: None (occurrence: None)
  Receive Date: 20100721
  Receipt Date: 20080626
  Transmission Date: 20110219
  Serious: No
  Sender: FDA-Public Use
  Company Number: US-PFIZER INC-2008029907

PATIENT
  Age: 51 Year
  Sex: Male

DRUGS (3)
  1. CHANTIX [Suspect]
     Indication: SMOKING CESSATION THERAPY
     Route: 048
  2. PROVIGIL [Concomitant]
  3. ALL OTHER THERAPEUTIC PRODUCTS [Concomitant]

REACTIONS (1)
  - AGGRESSION [None]
